FAERS Safety Report 5007658-7 (Version None)
Quarter: 2006Q2

REPORT INFORMATION
  Report Type: 
  Country: None (occurrence: None)
  Receive Date: 20060522
  Receipt Date: 20060517
  Transmission Date: 20061013
  Serious: Yes (Hospitalization)
  Sender: FDA-Public Use
  Company Number: FR-AVENTIS-200611809FR

PATIENT
  Age: 73 Year
  Sex: Female
  Weight: 50 kg

DRUGS (12)
  1. LASILIX [Suspect]
     Indication: ESSENTIAL HYPERTENSION
     Route: 048
     Dates: end: 20060411
  2. TRIATEC [Suspect]
     Indication: ESSENTIAL HYPERTENSION
     Route: 048
     Dates: end: 20050411
  3. PLAQUENIL [Suspect]
     Indication: Q FEVER
     Route: 048
     Dates: start: 20060314, end: 20060411
  4. DOXYCYCLINE [Concomitant]
     Indication: Q FEVER
     Route: 048
     Dates: start: 20060314
  5. ZOCOR [Concomitant]
     Indication: ARTERIOSCLEROSIS
     Route: 048
  6. CARDENSIEL [Concomitant]
     Indication: ESSENTIAL HYPERTENSION
     Route: 048
  7. MOPRAL [Concomitant]
  8. KALEORID [Concomitant]
  9. SOLUPRED [Concomitant]
     Indication: SYSTEMIC LUPUS ERYTHEMATOSUS
  10. ATHYMIL [Concomitant]
  11. LEXOMIL [Concomitant]
  12. OROCAL [Concomitant]

REACTIONS (2)
  - DIARRHOEA [None]
  - RENAL FAILURE ACUTE [None]
